FAERS Safety Report 15016747 (Version 1)
Quarter: 2018Q2

REPORT INFORMATION
  Report Type: Spontaneous
  Country: FR (occurrence: FR)
  Receive Date: 20180615
  Receipt Date: 20180615
  Transmission Date: 20180711
  Serious: Yes (Hospitalization)
  Sender: FDA-Public Use
  Company Number: FR-BAYER-2018-113466

PATIENT
  Age: 62 Year
  Sex: Female
  Weight: 78 kg

DRUGS (5)
  1. ASPIRIN. [Suspect]
     Active Substance: ASPIRIN
     Indication: VIRAL PHARYNGITIS
     Dosage: 2 G, QD
     Route: 048
     Dates: start: 20180312
  2. IBUPROFENE [Suspect]
     Active Substance: IBUPROFEN
     Indication: VIRAL PHARYNGITIS
     Route: 048
  3. CODEINE [Concomitant]
     Active Substance: CODEINE
  4. PARACETAMOL [Concomitant]
     Active Substance: ACETAMINOPHEN
  5. AMOXICILLINE [Concomitant]
     Active Substance: AMOXICILLIN

REACTIONS (1)
  - Vascular purpura [Recovering/Resolving]

NARRATIVE: CASE EVENT DATE: 20180312
